FAERS Safety Report 15124877 (Version 3)
Quarter: 2018Q3

REPORT INFORMATION
  Report Type: Spontaneous
  Country: US (occurrence: US)
  Receive Date: 20180710
  Receipt Date: 20180920
  Transmission Date: 20181010
  Serious: Yes (Other)
  Sender: FDA-Public Use
  Company Number: US-ASTELLAS-2018US030296

PATIENT
  Age: 72 Year
  Sex: Male

DRUGS (1)
  1. XTANDI [Suspect]
     Active Substance: ENZALUTAMIDE
     Indication: PROSTATE CANCER
     Route: 048
     Dates: start: 20180623

REACTIONS (4)
  - Arthralgia [Unknown]
  - Musculoskeletal pain [Unknown]
  - Gastrooesophageal reflux disease [Unknown]
  - Back pain [Unknown]

NARRATIVE: CASE EVENT DATE: 20180703
